FAERS Safety Report 6463817-8 (Version None)
Quarter: 2009Q4

REPORT INFORMATION
  Report Type: 
  Country: None (occurrence: None)
  Receive Date: 20091201
  Receipt Date: 20091120
  Transmission Date: 20100525
  Serious: Yes (Other)
  Sender: FDA-Public Use
  Company Number: US-JNJFOC-20091106569

PATIENT
  Sex: Female
  Weight: 29.48 kg

DRUGS (1)
  1. CONCERTA [Suspect]
     Indication: ATTENTION DEFICIT/HYPERACTIVITY DISORDER
     Route: 048
     Dates: start: 20070101, end: 20091117

REACTIONS (4)
  - COMPULSIONS [None]
  - CRYING [None]
  - NEGATIVE THOUGHTS [None]
  - VIOLENCE-RELATED SYMPTOM [None]
